FAERS Safety Report 4964048-0 (Version None)
Quarter: 2006Q1

REPORT INFORMATION
  Report Type: 
  Country: None (occurrence: None)
  Receive Date: 20060330
  Receipt Date: 20060315
  Transmission Date: 20060701
  Serious: No
  Sender: FDA-Public Use
  Company Number: 20062861

PATIENT
  Sex: Male

DRUGS (1)
  1. LIORESAL [Suspect]
     Indication: MUSCLE SPASTICITY
     Dosage: 500 MCG, DAILY, INTRATHECAL
     Route: 037

REACTIONS (2)
  - HYPERTONIA [None]
  - PYREXIA [None]
